FAERS Safety Report 6663754-X (Version None)
Quarter: 2010Q2

REPORT INFORMATION
  Report Type: 
  Country: None (occurrence: None)
  Receive Date: 20100401
  Receipt Date: 20100319
  Transmission Date: 20101027
  Serious: Yes (Life-Threatening, Other)
  Sender: FDA-Public Use
  Company Number: FR-PFIZER INC-2010041189

PATIENT
  Age: 58 Year
  Sex: Female

DRUGS (13)
  1. ATARAX [Suspect]
     Indication: ANXIETY
     Route: 048
  2. DEPAMIDE [Suspect]
     Indication: BIPOLAR DISORDER
     Route: 048
  3. MEPRONIZINE [Suspect]
     Indication: INSOMNIA
     Route: 048
  4. TRANXENE [Suspect]
     Indication: ANXIETY
     Route: 048
  5. EQUANIL [Suspect]
     Indication: ANXIETY
     Route: 048
  6. FUROSEMIDE [Concomitant]
  7. SEGLOR [Concomitant]
  8. MONTELUKAST SODIUM [Concomitant]
  9. SERETIDE [Concomitant]
  10. ENDOTELON [Concomitant]
  11. TRANSIPEG [Concomitant]
  12. NEXIUM [Concomitant]
  13. ALLERGODIL [Concomitant]

REACTIONS (2)
  - COMA [None]
  - INTENTIONAL OVERDOSE [None]
